FAERS Safety Report 24128509 (Version 1)
Quarter: 2024Q3

REPORT INFORMATION
  Report Type: Spontaneous
  Country: US (occurrence: US)
  Receive Date: 20240723
  Receipt Date: 20240723
  Transmission Date: 20241017
  Serious: No
  Sender: NOVO NORDISK
  Company Number: US-NOVOPROD-1159304

PATIENT
  Age: 66 Year
  Sex: Female

DRUGS (1)
  1. RYBELSUS [Suspect]
     Active Substance: SEMAGLUTIDE
     Indication: Diabetes mellitus
     Dosage: 1 TAB PERDAY
     Route: 048
     Dates: start: 202306

REACTIONS (2)
  - Arthritis [Not Recovered/Not Resolved]
  - Product packaging difficult to open [Not Recovered/Not Resolved]
